FAERS Safety Report 14909389 (Version 1)
Quarter: 2018Q2

REPORT INFORMATION
  Report Type: Spontaneous
  Country: US (occurrence: US)
  Receive Date: 20180430
  Receipt Date: 20180430
  Transmission Date: 20180711
  Serious: No
  Sender: FDA-Public Use
  Company Number: None

PATIENT
  Age: 61 Year
  Sex: Female
  Weight: 60.75 kg

DRUGS (8)
  1. FERROUS SULFATE. [Concomitant]
     Active Substance: FERROUS SULFATE
  2. TRADER JOES ODORLESS OMEGA 3 FATTY ACID CAPSULE [Concomitant]
  3. VITAMIN D3 [Concomitant]
     Active Substance: CHOLECALCIFEROL
  4. ALENDRONATE SODIUM. [Suspect]
     Active Substance: ALENDRONATE SODIUM
     Indication: OSTEOPOROSIS
     Dosage: ?          QUANTITY:1 TABLET(S);OTHER FREQUENCY:ONCE A WEEK;?
     Route: 048
     Dates: start: 20180314, end: 20180314
  5. NASALCROM [Concomitant]
     Active Substance: CROMOLYN SODIUM
  6. WEGMANS CENTURY COMPLETE (VITAMINS AND MINERALS) [Concomitant]
  7. VITAMIN [Concomitant]
     Active Substance: VITAMINS
  8. VITAMIN C [Concomitant]
     Active Substance: ASCORBIC ACID

REACTIONS (5)
  - Gastrointestinal pain [None]
  - Myalgia [None]
  - Joint stiffness [None]
  - Burning sensation [None]
  - Fatigue [None]

NARRATIVE: CASE EVENT DATE: 20180314
